FAERS Safety Report 4360282-1 (Version None)
Quarter: 2004Q2

REPORT INFORMATION
  Report Type: 
  Country: None (occurrence: None)
  Receive Date: 20040518
  Receipt Date: 20040420
  Transmission Date: 20050107
  Serious: Yes (Hospitalization)
  Sender: FDA-Public Use
  Company Number: UKO04000033

PATIENT
  Sex: Female

DRUGS (1)
  1. VICKS VAPORUB, POMATO BALSAMICA(CAMPHOR 149.5 MG, MENTHOL 76.70 MG, TH [Suspect]
     Indication: UPPER RESPIRATORY TRACT INFECTION
     Dosage: TOPICAL
     Route: 061

REACTIONS (2)
  - DYSPNOEA [None]
  - LARYNGITIS [None]
